FAERS Safety Report 4554535-1 (Version None)
Quarter: 2005Q1

REPORT INFORMATION
  Report Type: 
  Country: None (occurrence: None)
  Receive Date: 20041227
  Receipt Date: 20041008
  Transmission Date: 20050727
  Serious: No
  Sender: FDA-Public Use
  Company Number: SP00357

PATIENT
  Age: 57 Year
  Sex: Female
  Weight: 49.8957 kg

DRUGS (8)
  1. XIFAXAN [Suspect]
     Indication: CROHN'S DISEASE
     Dosage: 200 MG/TID, ORAL
     Route: 048
     Dates: start: 20040818
  2. EVISTA [Concomitant]
  3. MIACALCIN [Concomitant]
  4. NORTRIPTYLINE HCL [Concomitant]
  5. TEMAZEPAM [Concomitant]
  6. COLAZAL [Concomitant]
  7. PREDNISONE [Concomitant]
  8. VIOXX [Concomitant]

REACTIONS (3)
  - DYSPNOEA [None]
  - HYPOVENTILATION [None]
  - RESPIRATORY RATE INCREASED [None]
